FAERS Safety Report 14640776 (Version 1)
Quarter: 2018Q1

REPORT INFORMATION
  Report Type: Spontaneous
  Country: US (occurrence: US)
  Receive Date: 20180315
  Receipt Date: 20180315
  Transmission Date: 20180509
  Serious: Yes (Death, Life-Threatening, Hospitalization, Disabling, Other)
  Sender: FDA-Public Use
  Company Number: US-JNJFOC-20180303900

PATIENT

DRUGS (4)
  1. IBUPROFEN. [Suspect]
     Active Substance: IBUPROFEN
     Indication: ANTIPYRESIS
     Route: 065
  2. PARACETAMOL [Suspect]
     Active Substance: ACETAMINOPHEN
     Route: 065
  3. PARACETAMOL [Suspect]
     Active Substance: ACETAMINOPHEN
     Indication: ANTIPYRESIS
     Route: 065
  4. IBUPROFEN. [Suspect]
     Active Substance: IBUPROFEN
     Route: 065

REACTIONS (23)
  - Death [Fatal]
  - Abdominal pain [Unknown]
  - Coma [Unknown]
  - Accidental exposure to product by child [Unknown]
  - Extra dose administered [Unknown]
  - Incorrect drug dosage form administered [Unknown]
  - Drug administration error [Unknown]
  - Drug dispensing error [Unknown]
  - Incorrect route of drug administration [Unknown]
  - Respiratory arrest [Unknown]
  - Product storage error [Unknown]
  - Drug interaction [Unknown]
  - Lethargy [Unknown]
  - Wrong drug administered [Unknown]
  - Failure of child resistant mechanism for pharmaceutical product [Unknown]
  - Vomiting [Unknown]
  - Somnolence [Unknown]
  - Incorrect dose administered [Unknown]
  - Inappropriate schedule of drug administration [Unknown]
  - Exposure via breast milk [Unknown]
  - Drug diversion [Unknown]
  - Seizure [Unknown]
  - Medication error [Unknown]
